FAERS Safety Report 9233424 (Version 1)
Quarter: 2013Q1

REPORT INFORMATION
  Report Type: Spontaneous
  Country: US (occurrence: None)
  Receive Date: 20121031
  Receipt Date: 20121031
  Transmission Date: 20140127
  Serious: No
  Sender: FDA-Public Use
  Company Number: PHEH2012US014400

PATIENT
  Age: 60 Year
  Sex: Male
  Weight: 81.6 kg

DRUGS (5)
  1. GILENYA (FTY)CAPSULE, 0.5MG [Suspect]
     Route: 048
  2. XANAX (ALPRAZOLAM) [Suspect]
  3. MOTRIN (IBUPROFEN ) [Concomitant]
  4. NIACIN (NICOTONIC ACID) [Concomitant]
  5. VITAMIN D (ERGOCALCIFEROL) [Concomitant]

REACTIONS (3)
  - Anxiety [None]
  - Diarrhoea [None]
  - Depression [None]
